FAERS Safety Report 6987197-4 (Version None)
Quarter: 2010Q3

REPORT INFORMATION
  Report Type: 
  Country: None (occurrence: None)
  Receive Date: 20100916
  Receipt Date: 20100818
  Transmission Date: 20110219
  Serious: Yes (Death)
  Sender: FDA-Public Use
  Company Number: US-BAYER-201037551GPV

PATIENT

DRUGS (2)
  1. SORAFENIB [Suspect]
     Indication: NEOPLASM MALIGNANT
     Dosage: TOTAL DAILY DOSE: 800 MG
     Route: 048
  2. TANESPIMYCIN [Suspect]
     Indication: NEOPLASM MALIGNANT
     Dosage: WITH 50 MG/M2 INCREMENTS ON DAYS 1, 8, AND 15 IN A 28-DAY  CYCLE.

REACTIONS (1)
  - DEATH [None]
